FAERS Safety Report 6651877-0 (Version None)
Quarter: 2010Q1

REPORT INFORMATION
  Report Type: 
  Country: None (occurrence: None)
  Receive Date: 20100325
  Receipt Date: 20100315
  Transmission Date: 20100710
  Serious: Yes (Other)
  Sender: FDA-Public Use
  Company Number: PHEH2010US02046

PATIENT
  Sex: Female

DRUGS (11)
  1. AFINITOR [Suspect]
     Indication: RENAL CELL CARCINOMA
     Dosage: 10 MG, QD
     Route: 048
     Dates: start: 20090930, end: 20091201
  2. AFINITOR [Suspect]
     Dosage: 10 MG, UNK
     Dates: start: 20091201
  3. AFINITOR [Suspect]
     Dosage: 5 MG, UNK
  4. AVASTIN [Suspect]
     Dosage: UNK
     Dates: start: 20091009
  5. ALLOPURINOL [Concomitant]
     Dosage: 100 MG, QD
  6. LEVOTHYROXINE SODIUM [Concomitant]
     Dosage: 0.125 MG, QD
  7. ATENOLOL [Concomitant]
     Dosage: 25 MG, QD
  8. FUROSEMIDE [Concomitant]
     Dosage: 40 MG, QD
  9. AMLODIPINE [Concomitant]
  10. ATORVASTATIN CALCIUM [Concomitant]
     Dosage: 40 MG, QD
  11. MIRTAZAPINE [Concomitant]

REACTIONS (26)
  - ABDOMINAL DISCOMFORT [None]
  - ASTHENIA [None]
  - BLOOD PRESSURE INCREASED [None]
  - CHEST DISCOMFORT [None]
  - CHEST PAIN [None]
  - CONSTIPATION [None]
  - COUGH [None]
  - DECREASED APPETITE [None]
  - DIARRHOEA [None]
  - DISTURBANCE IN ATTENTION [None]
  - DYSPHAGIA [None]
  - DYSPHONIA [None]
  - DYSPNOEA [None]
  - FALL [None]
  - FATIGUE [None]
  - HAEMORRHOIDS [None]
  - HYPOKALAEMIA [None]
  - MALAISE [None]
  - MALIGNANT NEOPLASM OF PLEURA [None]
  - MUSCULOSKELETAL CHEST PAIN [None]
  - MUSCULOSKELETAL DISCOMFORT [None]
  - NAUSEA [None]
  - NERVOUSNESS [None]
  - SLEEP DISORDER [None]
  - URINE PROTEIN/CREATININE RATIO INCREASED [None]
  - WEIGHT DECREASED [None]
